FAERS Safety Report 10882623 (Version 1)
Quarter: 2015Q1

REPORT INFORMATION
  Report Type: Spontaneous
  Country: US (occurrence: None)
  Receive Date: 20150226
  Receipt Date: 20150226
  Transmission Date: 20150721
  Serious: Yes (Disabling)
  Sender: FDA-Public Use
  Company Number: 2728305

PATIENT
  Age: 14 Year
  Sex: Male
  Weight: 52 kg

DRUGS (7)
  1. PULMOZYME [Concomitant]
     Active Substance: DORNASE ALFA
  2. AMIKACIN [Concomitant]
     Active Substance: AMIKACIN
  3. AMIKACIN [Suspect]
     Active Substance: AMIKACIN
     Indication: ATYPICAL MYCOBACTERIAL INFECTION
     Dosage: NOT OTHERWISE SPECIFIED?1 HOUR
     Route: 042
     Dates: start: 20130313, end: 20130503
  4. CAYSTON [Concomitant]
     Active Substance: AZTREONAM
  5. CEFOXITIN [Concomitant]
     Active Substance: CEFOXITIN\CEFOXITIN SODIUM
  6. ZITHROMAX [Concomitant]
     Active Substance: AZITHROMYCIN DIHYDRATE
  7. MEROPENEM. [Suspect]
     Active Substance: MEROPENEM
     Indication: ATYPICAL MYCOBACTERIAL INFECTION
     Dosage: 1 HOUR, ?NOT OTHERWISE SPECIFIED
     Route: 042
     Dates: start: 20130313, end: 20130503

REACTIONS (1)
  - Deafness [None]

NARRATIVE: CASE EVENT DATE: 20130321
